FAERS Safety Report 6985320-9 (Version None)
Quarter: 2010Q3

REPORT INFORMATION
  Report Type: 
  Country: None (occurrence: None)
  Receive Date: 20100915
  Receipt Date: 20100813
  Transmission Date: 20110219
  Serious: No
  Sender: FDA-Public Use
  Company Number: US-PFIZER INC-2010088643

PATIENT
  Sex: Female

DRUGS (6)
  1. HYDROXYZINE HCL [Suspect]
     Indication: PRURITUS
     Dosage: UNK
  2. LANTUS [Concomitant]
     Indication: DIABETES MELLITUS
     Dosage: UNK
  3. HUMALOG [Concomitant]
     Indication: DIABETES MELLITUS
     Dosage: UNK
  4. BENICAR [Concomitant]
     Indication: HYPERTENSION
     Dosage: UNK
  5. ACTOS [Concomitant]
     Dosage: UNK
  6. XANAX [Concomitant]
     Indication: ANXIETY
     Dosage: UNK

REACTIONS (1)
  - FEELING ABNORMAL [None]
